FAERS Safety Report 23227126 (Version 1)
Quarter: 2023Q4

REPORT INFORMATION
  Report Type: Spontaneous
  Country: NL (occurrence: NL)
  Receive Date: 20231124
  Receipt Date: 20231124
  Transmission Date: 20240110
  Serious: Yes (Life-Threatening)
  Sender: FDA-Public Use
  Company Number: None

PATIENT
  Age: 65 Year
  Sex: Male
  Weight: 88 kg

DRUGS (1)
  1. VORICONAZOLE [Suspect]
     Active Substance: VORICONAZOLE
     Indication: Bronchopulmonary aspergillosis
     Dosage: 100 MILLIGRAM DAILY; 1 PIECE TWICE A DAY  , BRAND NAME NOT SPECIFIED , TABLET FO
     Dates: start: 20230320

REACTIONS (1)
  - Hypokalaemia [Recovering/Resolving]
